FAERS Safety Report 10225905 (Version 1)
Quarter: 2014Q2

REPORT INFORMATION
  Report Type: Spontaneous
  Country: US (occurrence: US)
  Receive Date: 20140609
  Receipt Date: 20140609
  Transmission Date: 20141212
  Serious: Yes (Other)
  Sender: FDA-Public Use
  Company Number: US-ASTELLAS-2013US009507

PATIENT
  Sex: Female
  Weight: 65 kg

DRUGS (1)
  1. PROGRAF [Suspect]
     Indication: LIVER TRANSPLANT
     Route: 048
     Dates: start: 20090610

REACTIONS (3)
  - Nervousness [Unknown]
  - Tremor [Unknown]
  - Decreased appetite [Unknown]
